FAERS Safety Report 17650145 (Version 1)
Quarter: 2020Q2

REPORT INFORMATION
  Report Type: Report from Study
  Country: None (occurrence: US)
  Receive Date: 20200409
  Receipt Date: 20200409
  Transmission Date: 20200713
  Serious: Yes (Death, Other)
  Sender: FDA-Public Use
  Company Number: US-ABBVIE-19K-163-3143922-00

PATIENT
  Sex: Male
  Weight: 106 kg

DRUGS (2)
  1. IMBRUVICA [Suspect]
     Active Substance: IBRUTINIB
     Indication: CHRONIC LYMPHOCYTIC LEUKAEMIA
     Dosage: 420 MG, QD
     Route: 065
     Dates: start: 20171013, end: 20180827
  2. PROCRIT [Concomitant]
     Active Substance: ERYTHROPOIETIN
     Indication: CHEMOTHERAPY
     Dosage: UNK
     Dates: start: 20171213, end: 20181001

REACTIONS (3)
  - Adenocarcinoma [Fatal]
  - Thrombocytopenia [Not Recovered/Not Resolved]
  - Metastases to peritoneum [Fatal]

NARRATIVE: CASE EVENT DATE: 20180212
